FAERS Safety Report 5580465-2 (Version None)
Quarter: 2007Q4

REPORT INFORMATION
  Report Type: 
  Country: None (occurrence: None)
  Receive Date: 20071231
  Receipt Date: 20071231
  Transmission Date: 20080405
  Serious: Yes (Other)
  Sender: FDA-Public Use
  Company Number: None

PATIENT
  Age: 64 Year
  Sex: Female
  Weight: 102.0593 kg

DRUGS (1)
  1. PRAVASTATIN [Suspect]
     Indication: MIXED HYPERLIPIDAEMIA
     Dosage: 20 MG QHS PO
     Route: 048
     Dates: start: 20070607, end: 20071201

REACTIONS (4)
  - ANGER [None]
  - HOMICIDAL IDEATION [None]
  - MOOD ALTERED [None]
  - SOCIAL AVOIDANT BEHAVIOUR [None]
